FAERS Safety Report 5115177-2 (Version None)
Quarter: 2006Q3

REPORT INFORMATION
  Report Type: 
  Country: None (occurrence: None)
  Receive Date: 20060925
  Receipt Date: 20060925
  Transmission Date: 20061208
  Serious: Yes (Death)
  Sender: FDA-Public Use
  Company Number: None

PATIENT
  Age: 12 Year
  Sex: Male
  Weight: 34.0198 kg

DRUGS (3)
  1. PROPARICAINE [Suspect]
     Indication: OPHTHALMOLOGICAL EXAMINATION
     Dates: start: 20060309, end: 20060309
  2. FLUORON [Suspect]
     Indication: OPHTHALMOLOGICAL EXAMINATION
     Dates: start: 20060309, end: 20060309
  3. CYCLOPENTALATE [Suspect]

REACTIONS (6)
  - CARDIAC ARREST [None]
  - DRUG DISPENSING ERROR [None]
  - DRUG EFFECT PROLONGED [None]
  - OVERDOSE [None]
  - SUDDEN CARDIAC DEATH [None]
  - WRONG DRUG ADMINISTERED [None]
